FAERS Safety Report 5190665-1 (Version None)
Quarter: 2006Q4

REPORT INFORMATION
  Report Type: 
  Country: None (occurrence: None)
  Receive Date: 20061222
  Receipt Date: 20061109
  Transmission Date: 20070319
  Serious: No
  Sender: FDA-Public Use
  Company Number: US-BRISTOL-MYERS SQUIBB COMPANY-13572060

PATIENT
  Age: 57 Year
  Sex: Female
  Weight: 102 kg

DRUGS (3)
  1. ORENCIA [Suspect]
     Indication: RHEUMATOID ARTHRITIS
     Route: 042
     Dates: start: 20061024
  2. PREDNISONE TAB [Concomitant]
  3. VICODIN [Concomitant]

REACTIONS (2)
  - FOREIGN BODY SENSATION IN EYES [None]
  - VISUAL DISTURBANCE [None]
